FAERS Safety Report 16796083 (Version 1)
Quarter: 2019Q3

REPORT INFORMATION
  Report Type: Report from Study
  Country: CA (occurrence: CA)
  Receive Date: 20190911
  Receipt Date: 20190911
  Transmission Date: 20191005
  Serious: Yes (Other)
  Sender: FDA-Public Use
  Company Number: CA-JNJFOC-20190907896

PATIENT
  Age: 59 Year
  Sex: Female

DRUGS (1)
  1. STELARA [Suspect]
     Active Substance: USTEKINUMAB
     Indication: GRANULOMA ANNULARE
     Route: 058
     Dates: start: 201404

REACTIONS (2)
  - Post procedural infection [Recovering/Resolving]
  - Breast operation [Recovering/Resolving]

NARRATIVE: CASE EVENT DATE: 20190814
